FAERS Safety Report 16959738 (Version 1)
Quarter: 2019Q4

REPORT INFORMATION
  Report Type: Report from Study
  Country: None (occurrence: US)
  Receive Date: 20191025
  Receipt Date: 20191025
  Transmission Date: 20200122
  Serious: Yes (Other)
  Sender: FDA-Public Use
  Company Number: US-ABBVIE-19K-163-2972366-00

PATIENT
  Sex: Male

DRUGS (2)
  1. VENCLEXTA [Suspect]
     Active Substance: VENETOCLAX
     Indication: NON-HODGKIN^S LYMPHOMA
     Dosage: STARTER PACK
     Route: 048
     Dates: start: 20190925
  2. RITUXIMAB. [Concomitant]
     Active Substance: RITUXIMAB
     Indication: PRODUCT USED FOR UNKNOWN INDICATION

REACTIONS (5)
  - Lymphadenopathy mediastinal [Unknown]
  - Transfusion [Unknown]
  - Ascites [Unknown]
  - Splenomegaly [Unknown]
  - Pleural effusion [Unknown]

NARRATIVE: CASE EVENT DATE: 2019
